FAERS Safety Report 17829924 (Version 2)
Quarter: 2020Q2

REPORT INFORMATION
  Report Type: Spontaneous
  Country: US (occurrence: US)
  Receive Date: 20200527
  Receipt Date: 20200529
  Transmission Date: 20200714
  Serious: Yes (Other)
  Sender: FDA-Public Use
  Company Number: US-PFIZER INC-2020208213

PATIENT
  Age: 46 Year
  Sex: Male

DRUGS (10)
  1. KETAMINE HCL [Suspect]
     Active Substance: KETAMINE HYDROCHLORIDE
     Indication: MUSCULOSKELETAL PAIN
     Dosage: 20 MG
     Route: 042
  2. KETAMINE HCL [Suspect]
     Active Substance: KETAMINE HYDROCHLORIDE
     Indication: ANALGESIC THERAPY
  3. FENOFIBRATE. [Concomitant]
     Active Substance: FENOFIBRATE
     Dosage: UNK
  4. SITAGLIPTIN [Concomitant]
     Active Substance: SITAGLIPTIN
     Dosage: UNK
  5. ESOMEPRAZOLE. [Concomitant]
     Active Substance: ESOMEPRAZOLE MAGNESIUM
     Dosage: UNK
  6. FLUTICASONE. [Concomitant]
     Active Substance: FLUTICASONE
     Dosage: UNK
  7. LOSARTAN. [Concomitant]
     Active Substance: LOSARTAN
     Dosage: UNK
  8. HYDROCHLOROTHIAZIDE. [Concomitant]
     Active Substance: HYDROCHLOROTHIAZIDE
     Dosage: UNK
  9. PIOGLITAZONE. [Concomitant]
     Active Substance: PIOGLITAZONE
     Dosage: UNK
  10. SILDENAFIL. [Concomitant]
     Active Substance: SILDENAFIL
     Dosage: UNK

REACTIONS (3)
  - Hypotension [Recovered/Resolved]
  - Incorrect drug administration rate [Unknown]
  - Bradycardia [Recovered/Resolved]
